FAERS Safety Report 8832124 (Version 1)
Quarter: 2012Q4

REPORT INFORMATION
  Report Type: 
  Country: US (occurrence: US)
  Receive Date: 20121009
  Receipt Date: 20121009
  Transmission Date: 20130627
  Serious: No
  Sender: FDA-Public Use
  Company Number: US-BAYER-2012-098358

PATIENT
  Age: 64 Year
  Sex: Male

DRUGS (6)
  1. AVELOX [Suspect]
     Indication: CHRONIC SINUSITIS
     Dosage: 400 mg, QD
     Route: 048
     Dates: start: 20120908
  2. DIOVAN [Concomitant]
  3. PLAVIX [Concomitant]
  4. METFORMIN [Concomitant]
  5. WELCHOL [Concomitant]
  6. CRESTOR [Concomitant]

REACTIONS (5)
  - Back pain [None]
  - Arthralgia [Recovering/Resolving]
  - Dyspnoea [Recovering/Resolving]
  - Insomnia [Recovering/Resolving]
  - Pain [Recovering/Resolving]
